FAERS Safety Report 9562253 (Version 3)
Quarter: 2013Q4

REPORT INFORMATION
  Report Type: Report from Study
  Country: FR (occurrence: FR)
  Receive Date: 20130927
  Receipt Date: 20131112
  Transmission Date: 20140711
  Serious: Yes (Death, Hospitalization, Other)
  Sender: FDA-Public Use
  Company Number: FR-AMGEN-FRACT2013042988

PATIENT
  Age: 67 Year
  Sex: Female

DRUGS (13)
  1. PANITUMUMAB [Suspect]
     Indication: GASTROOESOPHAGEAL CANCER
     Dosage: 306 MG, UNK
     Route: 042
     Dates: start: 20130125, end: 20130603
  2. ELOXATIN [Concomitant]
     Dosage: 130 MG, UNK
     Route: 042
     Dates: start: 20130125, end: 20130603
  3. 5 FU [Concomitant]
     Dosage: 4200 MG, UNK
     Route: 042
     Dates: start: 20130125, end: 20130603
  4. FOLINATE CALCIUM [Concomitant]
     Dosage: 302 MG, UNK
     Route: 042
     Dates: start: 20130125, end: 20130603
  5. TEMERIT [Concomitant]
     Indication: HYPERTENSION
     Dosage: UNK
     Route: 048
     Dates: end: 20130408
  6. SOLUPRED [Concomitant]
     Indication: PROPHYLAXIS OF NAUSEA AND VOMITING
     Dosage: UNK
     Route: 048
     Dates: start: 20130225, end: 20130603
  7. TERCIAN [Concomitant]
  8. FLUOXETINE [Concomitant]
     Dosage: UNK
     Dates: start: 2000
  9. ESOMEPRAZOLE [Concomitant]
  10. CREON [Concomitant]
  11. UVEDOSE [Concomitant]
  12. DOMPERIDONE [Concomitant]
  13. SPIRIVA [Concomitant]

REACTIONS (3)
  - Pulmonary fibrosis [Fatal]
  - Lymphopenia [Unknown]
  - Dysphagia [Recovering/Resolving]
